FAERS Safety Report 4947777-4 (Version None)
Quarter: 2006Q1

REPORT INFORMATION
  Report Type: 
  Country: None (occurrence: None)
  Receive Date: 20060314
  Receipt Date: 20060303
  Transmission Date: 20060701
  Serious: Yes (Other)
  Sender: FDA-Public Use
  Company Number: TUK2006A00014

PATIENT
  Age: 58 Year
  Sex: 0

DRUGS (8)
  1. ACTOS [Suspect]
     Dosage: 15 MG ORAL
     Route: 048
     Dates: start: 20050415, end: 20060215
  2. METFORMIN HCL [Concomitant]
  3. BENDROFLUMETHIAZIDE (BENDROFLUMETHIAZIDE) [Concomitant]
  4. ATENOLOL [Concomitant]
  5. ADALAT CC [Concomitant]
  6. ASPIRIN [Concomitant]
  7. DOXAZOSIN (DOXAZOSIN) [Concomitant]
  8. LOSARTAN POTASSIUM [Concomitant]

REACTIONS (1)
  - MACULAR OEDEMA [None]
